FAERS Safety Report 24929327 (Version 1)
Quarter: 2025Q1

REPORT INFORMATION
  Report Type: Report from Study
  Country: CA (occurrence: CA)
  Receive Date: 20250205
  Receipt Date: 20250205
  Transmission Date: 20250409
  Serious: Yes (Other)
  Sender: ABBVIE
  Company Number: CA-ABBVIE-6113713

PATIENT
  Age: 55 Year
  Sex: Male

DRUGS (1)
  1. SKYRIZI [Suspect]
     Active Substance: RISANKIZUMAB-RZAA
     Indication: Crohn^s disease
     Route: 058
     Dates: start: 20240614

REACTIONS (4)
  - Surgery [Unknown]
  - Crohn^s disease [Unknown]
  - Inflammation [Unknown]
  - Stenosis [Unknown]

NARRATIVE: CASE EVENT DATE: 20241101
